FAERS Safety Report 9370623 (Version 1)
Quarter: 2013Q2

REPORT INFORMATION
  Report Type: Spontaneous
  Country: NL (occurrence: NL)
  Receive Date: 20130626
  Receipt Date: 20130626
  Transmission Date: 20140414
  Serious: Yes (Other)
  Sender: FDA-Public Use
  Company Number: NL-PFIZER INC-2013189265

PATIENT
  Age: 44 Year
  Sex: Female

DRUGS (4)
  1. EFEXOR [Suspect]
     Dosage: 37.5 MG, UNK
     Dates: start: 201106
  2. EFEXOR [Suspect]
     Dosage: 75 MG, UNK
  3. EFEXOR [Suspect]
     Dosage: 112.5 MG (37.5MG AND 75MG), UNK
     Dates: start: 201301
  4. TOPAMAX [Concomitant]
     Dosage: UNK

REACTIONS (4)
  - Drug dependence [Unknown]
  - Hepatitis C [Unknown]
  - Somnolence [Unknown]
  - Alcoholism [Unknown]
